FAERS Safety Report 11944912 (Version 2)
Quarter: 2016Q1

REPORT INFORMATION
  Report Type: Spontaneous
  Country: US (occurrence: US)
  Receive Date: 20160125
  Receipt Date: 20160301
  Transmission Date: 20160526
  Serious: No
  Sender: FDA-Public Use
  Company Number: US-PFIZER INC-2016036392

PATIENT
  Sex: Female

DRUGS (4)
  1. LYRICA [Suspect]
     Active Substance: PREGABALIN
     Dosage: UNK (LOWER DOSE)
  2. LYRICA [Suspect]
     Active Substance: PREGABALIN
     Dosage: AN EXTRA 50 MG CAPSULE OVER WHAT IS PRESCRIBED FOR HER
  3. LYRICA [Suspect]
     Active Substance: PREGABALIN
     Indication: PAIN
     Dosage: UNK
  4. LYRICA [Suspect]
     Active Substance: PREGABALIN
     Dosage: 400 MG, 1X/DAY(300 MG AT NIGHT /100 MG IN THE MORNING)

REACTIONS (4)
  - Feeling hot [Unknown]
  - Intentional product use issue [Unknown]
  - Drug ineffective [Unknown]
  - Pain [Unknown]

NARRATIVE: CASE EVENT DATE: 20160129
